FAERS Safety Report 8148278-5 (Version None)
Quarter: 2012Q1

REPORT INFORMATION
  Report Type: 
  Country: None (occurrence: None)
  Receive Date: 20120218
  Receipt Date: 20110512
  Transmission Date: 20120608
  Serious: No
  Sender: FDA-Public Use
  Company Number: US-ALLERGAN-1106552US

PATIENT
  Sex: Male

DRUGS (1)
  1. BOTULINUM TOXIN TYPE A [Suspect]
     Indication: IMPAIRED GASTRIC EMPTYING
     Dosage: UNK UNITS, SINGLE
     Route: 030
     Dates: start: 20110301, end: 20110301

REACTIONS (2)
  - DYSPNOEA [None]
  - CHEST PAIN [None]
